FAERS Safety Report 6716974-X (Version None)
Quarter: 2010Q2

REPORT INFORMATION
  Report Type: 
  Country: None (occurrence: None)
  Receive Date: 20100510
  Receipt Date: 20100510
  Transmission Date: 20101027
  Serious: Yes (Hospitalization, Other)
  Sender: FDA-Public Use
  Company Number: None

PATIENT
  Age: 1 Year
  Sex: Female
  Weight: 11.3399 kg

DRUGS (10)
  1. CHILDREN'S TYLENOL 160MG PER 5ML MCNEIL [Suspect]
     Indication: HAND-FOOT-AND-MOUTH DISEASE
     Dosage: 1 TSP. Q 4 HRS PO
     Route: 048
     Dates: start: 20100414, end: 20100419
  2. CHILDREN'S TYLENOL 160MG PER 5ML MCNEIL [Suspect]
     Indication: ORAL DISORDER
     Dosage: 1 TSP. Q 4 HRS PO
     Route: 048
     Dates: start: 20100414, end: 20100419
  3. CHILDREN'S TYLENOL 160MG PER 5ML MCNEIL [Suspect]
     Indication: PYREXIA
     Dosage: 1 TSP. Q 4 HRS PO
     Route: 048
     Dates: start: 20100414, end: 20100419
  4. CHILDREN'S TYLENOL 160MG PER 5ML MCNEIL [Suspect]
     Indication: HAND-FOOT-AND-MOUTH DISEASE
     Dosage: 1 TSP. Q 4 HRS PO
     Route: 048
     Dates: start: 20100507, end: 20100508
  5. CHILDREN'S TYLENOL 160MG PER 5ML MCNEIL [Suspect]
     Indication: ORAL DISORDER
     Dosage: 1 TSP. Q 4 HRS PO
     Route: 048
     Dates: start: 20100507, end: 20100508
  6. CHILDREN'S TYLENOL 160MG PER 5ML MCNEIL [Suspect]
     Indication: PYREXIA
     Dosage: 1 TSP. Q 4 HRS PO
     Route: 048
     Dates: start: 20100507, end: 20100508
  7. CHILDREN'S MOTRIN [Suspect]
     Indication: PYREXIA
     Dosage: 1 TSP. Q 6-8 HRS PO
     Route: 048
     Dates: start: 20100414, end: 20100419
  8. CHILDREN'S MOTRIN [Suspect]
     Indication: VIRAL INFECTION
     Dosage: 1 TSP. Q 6-8 HRS PO
     Route: 048
     Dates: start: 20100414, end: 20100419
  9. CHILDREN'S MOTRIN [Suspect]
     Indication: PYREXIA
     Dosage: 1 TSP. Q 6-8 HRS PO
     Route: 048
     Dates: start: 20100507, end: 20100508
  10. CHILDREN'S MOTRIN [Suspect]
     Indication: VIRAL INFECTION
     Dosage: 1 TSP. Q 6-8 HRS PO
     Route: 048
     Dates: start: 20100507, end: 20100508

REACTIONS (6)
  - ABNORMAL BEHAVIOUR [None]
  - COMMUNICATION DISORDER [None]
  - LETHARGY [None]
  - PRODUCT QUALITY ISSUE [None]
  - RESTLESSNESS [None]
  - VOMITING [None]
